FAERS Safety Report 21925238 (Version 1)
Quarter: 2023Q1

REPORT INFORMATION
  Report Type: Other
  Country: GB (occurrence: GB)
  Receive Date: 20230130
  Receipt Date: 20230130
  Transmission Date: 20230418
  Serious: Yes (Other)
  Sender: FDA-Public Use
  Company Number: None

PATIENT
  Age: 22 Year
  Sex: Female

DRUGS (2)
  1. PREDNISOLONE [Suspect]
     Active Substance: PREDNISOLONE
     Indication: Autoimmune disorder
     Dosage: 10 MILLIGRAM/DAY,10MG DAILY, TABLET
     Route: 065
     Dates: start: 20221223, end: 20221225
  2. PREDNISOLONE [Suspect]
     Active Substance: PREDNISOLONE
     Indication: Deafness

REACTIONS (2)
  - Hallucination, visual [Recovered/Resolved]
  - Hallucination, auditory [Recovered/Resolved]
